FAERS Safety Report 20762330 (Version 1)
Quarter: 2022Q2

REPORT INFORMATION
  Report Type: Spontaneous
  Country: ES (occurrence: ES)
  Receive Date: 20220428
  Receipt Date: 20220428
  Transmission Date: 20220721
  Serious: Yes (Other)
  Sender: FDA-Public Use
  Company Number: None

PATIENT
  Age: 46 Year
  Sex: Female
  Weight: 59 kg

DRUGS (5)
  1. HYPERICUM PERFORATUM EXTRACT [Suspect]
     Active Substance: HYPERICUM PERFORATUM EXTRACT
     Indication: Borderline personality disorder
     Dosage: 75 MG, QD (0-0-3/4 (USUAL PATTERN) DURING ADMISSION SAME PATTERN, SUSPENDED ON 02/22)
     Route: 048
     Dates: start: 2021, end: 20220222
  2. LAMOTRIGINE [Suspect]
     Active Substance: LAMOTRIGINE
     Indication: Borderline personality disorder
     Dosage: 50 MG, QD (USUAL GUIDELINE) DURING ADMISSION SAME GUIDELINE, SUSPENDED 02/22
     Route: 048
     Dates: start: 2021, end: 20220222
  3. PRISTIQ EXTENDED-RELEASE [Suspect]
     Active Substance: DESVENLAFAXINE SUCCINATE
     Indication: Borderline personality disorder
     Dosage: 50 MG, QOD (1-0-0 ON ALTERNATE DAYS (USUAL SCHEDULE) DURING ADMISSION DOSE INCREASE UP TO 200MG DAIL
     Route: 048
     Dates: start: 2021, end: 20220215
  4. PRISTIQ EXTENDED-RELEASE [Suspect]
     Active Substance: DESVENLAFAXINE SUCCINATE
     Dosage: 100 MG, QD
     Route: 048
     Dates: start: 20220216, end: 20220220
  5. PRISTIQ EXTENDED-RELEASE [Suspect]
     Active Substance: DESVENLAFAXINE SUCCINATE
     Dosage: 200 MG, QD
     Route: 048
     Dates: start: 20220221, end: 20220222

REACTIONS (1)
  - Urinary retention [Recovered/Resolved]

NARRATIVE: CASE EVENT DATE: 20220221
